FAERS Safety Report 19513988 (Version 2)
Quarter: 2023Q4

REPORT INFORMATION
  Report Type: Spontaneous
  Country: US (occurrence: US)
  Receive Date: 20210709
  Receipt Date: 20231027
  Transmission Date: 20240109
  Serious: No
  Sender: FDA-Public Use
  Company Number: US-AVEO ONCOLOGY-2021-AVEO-US003363

PATIENT

DRUGS (14)
  1. FOTIVDA [Suspect]
     Active Substance: TIVOZANIB HYDROCHLORIDE
     Indication: Renal cancer
     Dosage: 1.34 MG, DAILY
     Route: 048
  2. LEVOTHYROXINE SODIUM [Concomitant]
     Active Substance: LEVOTHYROXINE SODIUM
  3. CLONAZEPAM [Concomitant]
     Active Substance: CLONAZEPAM
  4. CARDIZEM [Concomitant]
     Active Substance: DILTIAZEM HYDROCHLORIDE
  5. ULORIC [Concomitant]
     Active Substance: FEBUXOSTAT
  6. TRULICITY [Concomitant]
     Active Substance: DULAGLUTIDE
  7. HYDRALAZINE [Concomitant]
     Active Substance: HYDRALAZINE HYDROCHLORIDE
  8. SODIUM BICARBONATE [Concomitant]
     Active Substance: SODIUM BICARBONATE
  9. FINASTERIDE [Concomitant]
     Active Substance: FINASTERIDE
  10. DOXAZOSIN MESYLATE [Concomitant]
     Active Substance: DOXAZOSIN MESYLATE
  11. MIRTAZAPINE [Concomitant]
     Active Substance: MIRTAZAPINE
  12. ZOCOR [Concomitant]
     Active Substance: SIMVASTATIN
  13. MYCOPHENOLATE MOFETIL [Concomitant]
     Active Substance: MYCOPHENOLATE MOFETIL
  14. PREDNISONE [Concomitant]
     Active Substance: PREDNISONE

REACTIONS (4)
  - Nausea [Unknown]
  - Diarrhoea [Unknown]
  - Abdominal discomfort [Unknown]
  - Proteinuria [Unknown]
